FAERS Safety Report 5748364-0 (Version None)
Quarter: 2008Q2

REPORT INFORMATION
  Report Type: 
  Country: None (occurrence: None)
  Receive Date: 20080523
  Receipt Date: 20080515
  Transmission Date: 20081010
  Serious: Yes (Congenital Anomaly)
  Sender: FDA-Public Use
  Company Number: GB-ABBOTT-08P-167-0441007-00

PATIENT
  Sex: Female

DRUGS (1)
  1. VALPROIC ACID [Suspect]
     Indication: DRUG EXPOSURE DURING PREGNANCY
     Route: 064

REACTIONS (18)
  - CLEFT PALATE [None]
  - CONGENITAL FOOT MALFORMATION [None]
  - CONGENITAL HAIR DISORDER [None]
  - CONGENITAL HAND MALFORMATION [None]
  - CONGENITAL HEARING DISORDER [None]
  - CONGENITAL JAW MALFORMATION [None]
  - CONGENITAL NOSE MALFORMATION [None]
  - DRUG EXPOSURE DURING PREGNANCY [None]
  - DYSMORPHISM [None]
  - FOETAL ANTICONVULSANT SYNDROME [None]
  - GAIT DISTURBANCE [None]
  - JOINT RANGE OF MOTION DECREASED [None]
  - KIDNEY DUPLEX [None]
  - OTITIS MEDIA [None]
  - SKULL MALFORMATION [None]
  - SPEECH DISORDER DEVELOPMENTAL [None]
  - STRABISMUS [None]
  - URINARY TRACT INFECTION [None]
